FAERS Safety Report 6885147-2 (Version None)
Quarter: 2010Q3

REPORT INFORMATION
  Report Type: 
  Country: None (occurrence: None)
  Receive Date: 20100729
  Receipt Date: 20071220
  Transmission Date: 20110219
  Serious: Yes (Other)
  Sender: FDA-Public Use
  Company Number: US-PFIZER INC-2007106931

PATIENT
  Sex: Male
  Weight: 81.6 kg

DRUGS (7)
  1. CELEBREX [Suspect]
     Indication: NECK PAIN
     Dates: start: 20071024, end: 20071029
  2. CELEBREX [Suspect]
     Indication: ARTHRITIS
  3. ACETYLSALICYLIC ACID SRT [Concomitant]
  4. VITAMINS [Concomitant]
  5. LEVOXYL [Concomitant]
     Indication: THYROID DISORDER
  6. ATENOLOL [Concomitant]
     Indication: HYPERTENSION
  7. HYDROCHLOROTHIAZIDE [Concomitant]
     Indication: HYPERTENSION

REACTIONS (1)
  - HYPERSENSITIVITY [None]
